FAERS Safety Report 4872457-3 (Version None)
Quarter: 2006Q1

REPORT INFORMATION
  Report Type: 
  Country: None (occurrence: None)
  Receive Date: 20060104
  Receipt Date: 20050408
  Transmission Date: 20060701
  Serious: Yes (Hospitalization, Disabling)
  Sender: FDA-Public Use
  Company Number: US-MERCK-0504USA01588

PATIENT
  Age: 50 Year
  Sex: Female
  Weight: 73 kg

DRUGS (1)
  1. VIOXX [Suspect]
     Indication: OSTEOARTHRITIS
     Route: 048
     Dates: start: 20010101, end: 20040101

REACTIONS (5)
  - CARDIAC DISORDER [None]
  - HEART RATE INCREASED [None]
  - INTESTINAL HAEMORRHAGE [None]
  - NEPHROLITHIASIS [None]
  - PLANTAR FASCIITIS [None]
